FAERS Safety Report 15089234 (Version 1)
Quarter: 2018Q2

REPORT INFORMATION
  Report Type: Report from Study
  Country: US (occurrence: US)
  Receive Date: 20180629
  Receipt Date: 20180629
  Transmission Date: 20180711
  Serious: Yes (Other)
  Sender: FDA-Public Use
  Company Number: US-CONCORDIA PHARMACEUTICALS INC.-GSH201806-002117

PATIENT
  Sex: Female

DRUGS (3)
  1. PREDNISOLONE. [Suspect]
     Active Substance: PREDNISOLONE
     Indication: PRODUCT USED FOR UNKNOWN INDICATION
     Route: 065
  2. PLAQUENIL [Suspect]
     Active Substance: HYDROXYCHLOROQUINE SULFATE
     Indication: PRODUCT USED FOR UNKNOWN INDICATION
     Route: 065
  3. ENBREL [Suspect]
     Active Substance: ETANERCEPT
     Indication: PSORIATIC ARTHROPATHY
     Route: 065

REACTIONS (12)
  - Injection site mass [Unknown]
  - Fatigue [Unknown]
  - Influenza [Unknown]
  - Injection site swelling [Unknown]
  - Joint effusion [Unknown]
  - Cachexia [Unknown]
  - Dyspnoea [Unknown]
  - Drug effect incomplete [Unknown]
  - Inflammatory bowel disease [Unknown]
  - Head injury [Unknown]
  - Concussion [Unknown]
  - Injection site pruritus [Unknown]
